FAERS Safety Report 21833638 (Version 1)
Quarter: 2023Q1

REPORT INFORMATION
  Report Type: Report from Study
  Country: CA (occurrence: CA)
  Receive Date: 20230107
  Receipt Date: 20230107
  Transmission Date: 20230418
  Serious: Yes (Other)
  Sender: FDA-Public Use
  Company Number: CA-002147023-NVSC2023CA002197

PATIENT
  Age: 69 Year
  Sex: Female

DRUGS (1)
  1. FULVESTRANT [Suspect]
     Active Substance: FULVESTRANT
     Indication: Product used for unknown indication
     Dosage: 250 MG, OTHER (EVERY 28 DAYS)
     Route: 065
     Dates: start: 20221223

REACTIONS (2)
  - Neoplasm malignant [Unknown]
  - Malaise [Unknown]

NARRATIVE: CASE EVENT DATE: 20230104
